FAERS Safety Report 6993150-7 (Version None)
Quarter: 2010Q3

REPORT INFORMATION
  Report Type: 
  Country: None (occurrence: None)
  Receive Date: 20100917
  Receipt Date: 20090928
  Transmission Date: 20110219
  Serious: Yes (Other)
  Sender: FDA-Public Use
  Company Number: US-ASTRAZENECA-2009SE16338

PATIENT
  Age: 532 Month
  Sex: Male
  Weight: 108.9 kg

DRUGS (4)
  1. SEROQUEL [Suspect]
     Indication: BIPOLAR DISORDER
     Dosage: 50 MG - 200 MG
     Route: 048
     Dates: start: 20070907, end: 20080201
  2. SEROQUEL [Suspect]
     Indication: ANXIETY
     Dosage: 50 MG - 200 MG
     Route: 048
     Dates: start: 20070907, end: 20080201
  3. SEROQUEL [Suspect]
     Indication: POST-TRAUMATIC STRESS DISORDER
     Dosage: 50 MG - 200 MG
     Route: 048
     Dates: start: 20070907, end: 20080201
  4. HALDOL [Concomitant]

REACTIONS (2)
  - DIABETIC COMA [None]
  - TYPE 2 DIABETES MELLITUS [None]
